FAERS Safety Report 4747754-2 (Version None)
Quarter: 2005Q3

REPORT INFORMATION
  Report Type: 
  Country: None (occurrence: None)
  Receive Date: 20050816
  Receipt Date: 20050803
  Transmission Date: 20060218
  Serious: Yes (Hospitalization, Other)
  Sender: FDA-Public Use
  Company Number: 2005-0008595

PATIENT
  Age: 45 Year
  Sex: Male

DRUGS (3)
  1. TRUVADA [Suspect]
     Indication: HIV INFECTION
     Dosage: 1 DOSAGE FORMS, ORAL
     Route: 048
     Dates: start: 20040901
  2. SUSTIVA [Concomitant]
  3. LIPITOR [Concomitant]

REACTIONS (5)
  - DIZZINESS [None]
  - HAEMOLYTIC ANAEMIA [None]
  - MYCOPLASMA INFECTION [None]
  - MYCOPLASMA SEROLOGY POSITIVE [None]
  - SYNCOPE [None]
